FAERS Safety Report 7294068-5 (Version None)
Quarter: 2011Q1

REPORT INFORMATION
  Report Type: 
  Country: None (occurrence: None)
  Receive Date: 20110203
  Receipt Date: 20110126
  Transmission Date: 20110831
  Serious: Yes (Hospitalization, Other)
  Sender: FDA-Public Use
  Company Number: 2010AM003475

PATIENT
  Age: 64 Year
  Sex: Male
  Weight: 136.0791 kg

DRUGS (4)
  1. PREV MEDS [Concomitant]
  2. SYMLIN [Suspect]
     Indication: TYPE 2 DIABETES MELLITUS
     Dosage: 60 MCG;QPM;SC
     Route: 058
     Dates: start: 20101201
  3. SYMLIN [Suspect]
     Indication: TYPE 2 DIABETES MELLITUS
     Dosage: 120 MCG;BID;SC ; 60 MCG;BID;SC
     Route: 058
  4. HUMULIN R [Concomitant]

REACTIONS (8)
  - ABDOMINAL DISCOMFORT [None]
  - CHOLECYSTECTOMY [None]
  - HALLUCINATION [None]
  - APPENDICECTOMY [None]
  - ABDOMINAL PAIN UPPER [None]
  - NAUSEA [None]
  - DRUG PRESCRIBING ERROR [None]
  - MULTI-ORGAN FAILURE [None]
